FAERS Safety Report 6912004-5 (Version None)
Quarter: 2010Q3

REPORT INFORMATION
  Report Type: 
  Country: None (occurrence: None)
  Receive Date: 20100806
  Receipt Date: 20071017
  Transmission Date: 20110219
  Serious: No
  Sender: FDA-Public Use
  Company Number: US-PFIZER INC-2007088364

PATIENT
  Age: 40 Year
  Sex: Male
  Weight: 79.545 kg

DRUGS (1)
  1. DETROL LA [Suspect]

REACTIONS (2)
  - ACCIDENTAL EXPOSURE [None]
  - HEADACHE [None]
